FAERS Safety Report 23470958 (Version 1)
Quarter: 2024Q1

REPORT INFORMATION
  Report Type: Spontaneous
  Country: GB (occurrence: GB)
  Receive Date: 20240202
  Receipt Date: 20240202
  Transmission Date: 20240410
  Serious: Yes (Life-Threatening, Disabling, Other)
  Sender: FDA-Public Use
  Company Number: None

PATIENT
  Age: 19 Year
  Sex: Female
  Weight: 87 kg

DRUGS (2)
  1. ARIPIPRAZOLE [Suspect]
     Active Substance: ARIPIPRAZOLE
     Indication: Autism spectrum disorder
     Dosage: 4 ML
     Route: 065
     Dates: start: 20210621
  2. ARIPIPRAZOLE [Suspect]
     Active Substance: ARIPIPRAZOLE
     Indication: Emotional disorder
     Dosage: UNK (REDUCED DOSE)
     Route: 065

REACTIONS (5)
  - Compulsions [Not Recovered/Not Resolved]
  - Dystonia [Not Recovered/Not Resolved]
  - Insomnia [Not Recovered/Not Resolved]
  - Suicidal behaviour [Not Recovered/Not Resolved]
  - Product use in unapproved indication [Unknown]

NARRATIVE: CASE EVENT DATE: 20210621
